FAERS Safety Report 5712576-2 (Version None)
Quarter: 2008Q2

REPORT INFORMATION
  Report Type: 
  Country: None (occurrence: None)
  Receive Date: 20080422
  Receipt Date: 20080409
  Transmission Date: 20081010
  Serious: Yes (Hospitalization, Other)
  Sender: FDA-Public Use
  Company Number: US-AMGEN-QUU271440

PATIENT
  Sex: Female
  Weight: 68.1 kg

DRUGS (2)
  1. ENBREL [Suspect]
     Indication: RHEUMATOID ARTHRITIS
     Route: 058
     Dates: start: 20071206
  2. PREDNISONE [Concomitant]

REACTIONS (2)
  - ATRIAL FIBRILLATION [None]
  - LEUKOPENIA [None]
